FAERS Safety Report 7249195-5 (Version None)
Quarter: 2011Q1

REPORT INFORMATION
  Report Type: 
  Country: None (occurrence: None)
  Receive Date: 20110128
  Receipt Date: 20101201
  Transmission Date: 20110831
  Serious: Yes (Other)
  Sender: FDA-Public Use
  Company Number: US-BAYER-2010-001383

PATIENT
  Sex: Female
  Weight: 175 kg

DRUGS (1)
  1. ASPIRIN [Suspect]
     Indication: HEADACHE
     Dosage: UNK
     Route: 048
     Dates: start: 20101201

REACTIONS (6)
  - MALAISE [None]
  - FEELING JITTERY [None]
  - TREMOR [None]
  - ABDOMINAL PAIN UPPER [None]
  - GAIT DEVIATION [None]
  - DIZZINESS [None]
